FAERS Safety Report 5371433-4 (Version None)
Quarter: 2007Q2

REPORT INFORMATION
  Report Type: 
  Country: None (occurrence: None)
  Receive Date: 20070615
  Receipt Date: 20061213
  Transmission Date: 20071010
  Serious: Yes (Other)
  Sender: FDA-Public Use
  Company Number: 200615255US

PATIENT
  Age: 38 Year
  Sex: Female

DRUGS (6)
  1. LANTUS [Suspect]
     Indication: DIABETES MELLITUS NON-INSULIN-DEPENDENT
     Dosage: HS INJ
     Dates: start: 20050101, end: 20060607
  2. LANTUS [Suspect]
     Indication: DIABETES MELLITUS NON-INSULIN-DEPENDENT
     Dosage: 31 U HS INJ
     Dates: start: 20060608
  3. LANTUS [Suspect]
     Indication: DIABETES MELLITUS NON-INSULIN-DEPENDENT
     Dosage: 33 U HS INJ
  4. OPTICLIK [Suspect]
     Indication: DIABETES MELLITUS NON-INSULIN-DEPENDENT
     Dates: start: 20060608
  5. AMARYL [Concomitant]
  6. METFORMIN HCL [Concomitant]

REACTIONS (1)
  - HYPERGLYCAEMIA [None]
